FAERS Safety Report 10078002 (Version 3)
Quarter: 2014Q2

REPORT INFORMATION
  Report Type: Report from Study
  Country: US (occurrence: US)
  Receive Date: 20140415
  Receipt Date: 20140519
  Transmission Date: 20141212
  Serious: Yes (Death, Hospitalization)
  Sender: FDA-Public Use
  Company Number: US-BIOGENIDEC-2014BI033640

PATIENT
  Age: 60 Year
  Sex: Male

DRUGS (1)
  1. AVONEX [Suspect]
     Indication: MULTIPLE SCLEROSIS
     Route: 030
     Dates: start: 200705, end: 201404

REACTIONS (5)
  - Death [Fatal]
  - Myelitis transverse [Unknown]
  - Off label use [Unknown]
  - Urosepsis [Fatal]
  - Cerebrovascular accident [Unknown]
